FAERS Safety Report 9565875 (Version 1)
Quarter: 2013Q3

REPORT INFORMATION
  Report Type: Report from Study
  Country: BR (occurrence: BR)
  Receive Date: 20130930
  Receipt Date: 20130930
  Transmission Date: 20140515
  Serious: Yes (Other)
  Sender: FDA-Public Use
  Company Number: PHHY2013BR108747

PATIENT
  Sex: Male
  Weight: 63 kg

DRUGS (8)
  1. EXELON PATCH [Suspect]
     Indication: MEMORY IMPAIRMENT
     Dosage: UNK UKN, UNK (1 ADHESIVE DAILY)
     Route: 062
     Dates: start: 201307
  2. ALOIS [Suspect]
     Dosage: UNK UKN, UNK
  3. HIDANTAL [Concomitant]
     Indication: EPILEPSY
     Dosage: UNK UKN, UNK
  4. PRESSAT [Concomitant]
     Dosage: UNK UKN, UNK
  5. NATRILIX [Concomitant]
     Dosage: UNK UKN, UNK
  6. CRESTOR [Concomitant]
     Dosage: UNK UKN, UNK
  7. OMEPRAZOLE [Concomitant]
     Dosage: UNK UKN, UNK
  8. CLOPIDOGREL [Concomitant]
     Dosage: UNK UKN, UNK

REACTIONS (5)
  - Aneurysm [Not Recovered/Not Resolved]
  - Hypersensitivity [Not Recovered/Not Resolved]
  - Blister [Not Recovered/Not Resolved]
  - Mass [Not Recovered/Not Resolved]
  - Pruritus [Not Recovered/Not Resolved]
